FAERS Safety Report 5072387-0 (Version None)
Quarter: 2006Q3

REPORT INFORMATION
  Report Type: 
  Country: None (occurrence: None)
  Receive Date: 20060710
  Receipt Date: 20060324
  Transmission Date: 20061208
  Serious: Yes (Other)
  Sender: FDA-Public Use
  Company Number: PROG00205004183

PATIENT
  Age: 37 Year
  Sex: Female

DRUGS (2)
  1. PROMETRIUM [Suspect]
     Indication: PRENATAL CARE
     Dosage: SEE IMAGE
     Route: 048
     Dates: start: 20050201, end: 20050316
  2. PROMETRIUM [Suspect]
     Indication: PRENATAL CARE
     Dosage: SEE IMAGE
     Route: 048
     Dates: start: 20050525, end: 20050816

REACTIONS (1)
  - ABORTION MISSED [None]
